FAERS Safety Report 5841455-5 (Version None)
Quarter: 2008Q3

REPORT INFORMATION
  Report Type: 
  Country: None (occurrence: None)
  Receive Date: 20080812
  Receipt Date: 20080805
  Transmission Date: 20090109
  Serious: Yes (Hospitalization, Other)
  Sender: FDA-Public Use
  Company Number: US-CELGENEUS-163-21880-08070976

PATIENT
  Sex: Female
  Weight: 93.2 kg

DRUGS (2)
  1. REVLIMID [Suspect]
     Indication: MANTLE CELL LYMPHOMA
     Route: 048
     Dates: start: 20080602, end: 20080722
  2. REVLIMID [Suspect]
     Dosage: 2.5 - 20 MG
     Route: 048
     Dates: start: 20080310, end: 20080523

REACTIONS (7)
  - ATRIAL FIBRILLATION [None]
  - ATRIAL FLUTTER [None]
  - DYSPNOEA EXERTIONAL [None]
  - ENDOCARDITIS STAPHYLOCOCCAL [None]
  - HAEMOGLOBIN DECREASED [None]
  - PNEUMONIA [None]
  - SEPTIC EMBOLUS [None]
